FAERS Safety Report 5628306-9 (Version None)
Quarter: 2008Q1

REPORT INFORMATION
  Report Type: 
  Country: None (occurrence: None)
  Receive Date: 20080215
  Receipt Date: 20071206
  Transmission Date: 20080703
  Serious: Yes (Hospitalization)
  Sender: FDA-Public Use
  Company Number: US-BOEHRINGER INGELHEIM GMBH, GERMANY-2007-BP-06137BP

PATIENT
  Sex: Male
  Weight: 88 kg

DRUGS (24)
  1. MIRAPEX [Suspect]
     Indication: PARKINSON'S DISEASE
     Route: 048
     Dates: start: 19980101, end: 20020501
  2. MIRAPEX [Suspect]
     Route: 048
     Dates: start: 20030101, end: 20040501
  3. SINEMET [Concomitant]
     Indication: PARKINSON'S DISEASE
     Dates: start: 19980201
  4. ARTANE [Concomitant]
     Indication: PARKINSON'S DISEASE
     Dates: start: 19981207
  5. PERMAY [Concomitant]
     Indication: PARKINSON'S DISEASE
     Dates: start: 20020207
  6. HYDROCHLOROTHIAZIDE [Concomitant]
     Indication: HYPERTENSION
  7. LEXAPRO [Concomitant]
     Dates: start: 20030101
  8. PERGOLIDE MESYLATE [Concomitant]
  9. COMTAN [Concomitant]
  10. SYRIMETREL (AMANTADINE) [Concomitant]
     Indication: PARKINSON'S DISEASE
     Dates: start: 20010101
  11. ENTACAPONE [Concomitant]
  12. TRIHEXYPHENIDYL HCL [Concomitant]
     Indication: PARKINSON'S DISEASE
     Route: 048
     Dates: start: 19990101
  13. AMITRIPTYLINE HCL [Concomitant]
     Route: 048
  14. SERTRALINE HCL [Concomitant]
     Indication: DEPRESSION
     Route: 048
     Dates: start: 20031001
  15. HYDROCHLOROTHIAZIDE [Concomitant]
     Indication: FLUID RETENTION
     Route: 048
     Dates: start: 20030901
  16. ALPRAZOLAM [Concomitant]
     Dates: start: 20031001
  17. IBUPROFEN [Concomitant]
     Indication: PAIN
     Dates: start: 19990101
  18. PREDNISONE TAB [Concomitant]
  19. PERI-COLACE [Concomitant]
     Dates: start: 20010101
  20. VOLTAREN [Concomitant]
     Route: 048
     Dates: start: 19990101
  21. BOTOX [Concomitant]
     Indication: PAIN IN EXTREMITY
     Route: 048
     Dates: start: 20001122
  22. ASCORBIC ACID [Concomitant]
  23. BACLOFEN [Concomitant]
     Indication: MUSCLE SPASTICITY
     Dates: start: 20010101
  24. ZANAFLEX [Concomitant]
     Indication: MUSCLE SPASTICITY

REACTIONS (7)
  - ANXIETY [None]
  - DEPRESSION [None]
  - EMOTIONAL DISTRESS [None]
  - FEAR [None]
  - PAIN [None]
  - PATHOLOGICAL GAMBLING [None]
  - STRESS [None]
